FAERS Safety Report 6827758-6 (Version None)
Quarter: 2010Q3

REPORT INFORMATION
  Report Type: 
  Country: None (occurrence: None)
  Receive Date: 20100709
  Receipt Date: 20100628
  Transmission Date: 20110219
  Serious: No
  Sender: FDA-Public Use
  Company Number: B0620148A

PATIENT
  Sex: Female
  Weight: 69 kg

DRUGS (2)
  1. RELENZA [Suspect]
     Indication: INFLUENZA
     Dosage: 20MG PER DAY
     Route: 055
     Dates: start: 20091221, end: 20091225
  2. FERROMIA [Concomitant]
     Dosage: 2IUAX PER DAY
     Route: 048
     Dates: start: 20091105, end: 20091201

REACTIONS (2)
  - DELIVERY [None]
  - DRUG EXPOSURE DURING PREGNANCY [None]
